FAERS Safety Report 16212202 (Version 1)
Quarter: 2019Q2

REPORT INFORMATION
  Report Type: Spontaneous
  Country: US (occurrence: US)
  Receive Date: 20190314
  Receipt Date: 20190314
  Transmission Date: 20190711
  Serious: Yes (Other)
  Sender: FDA-Public Use
  Company Number: None

PATIENT
  Age: 79 Year
  Sex: Female
  Weight: 63.5 kg

DRUGS (9)
  1. PROLIA [Suspect]
     Active Substance: DENOSUMAB
     Indication: OSTEOPOROSIS
     Dosage: ?          QUANTITY:I?D-[INN I _;OTHER FREQUENCY:EVERY 6 MONTHS;?
     Dates: start: 20181105, end: 20181105
  2. VITAMIN -D [Concomitant]
  3. BLOOD PRESSURE MACHINE [Concomitant]
  4. OMEGA-3 ACIDS [Concomitant]
     Active Substance: OMEGA-3 FATTY ACIDS
  5. PROLIA [Suspect]
     Active Substance: DENOSUMAB
     Indication: OSTEOPENIA
     Dosage: ?          QUANTITY:I?D-[INN I _;OTHER FREQUENCY:EVERY 6 MONTHS;?
     Dates: start: 20181105, end: 20181105
  6. PREDNISONE. [Concomitant]
     Active Substance: PREDNISONE
  7. MACULA HEATH COMPLETE [Concomitant]
  8. DONA [Concomitant]
  9. LISINOPRIL. [Concomitant]
     Active Substance: LISINOPRIL

REACTIONS (14)
  - Headache [None]
  - Myalgia [None]
  - Pruritus [None]
  - Heart rate increased [None]
  - Blood pressure increased [None]
  - Tremor [None]
  - Nervous system disorder [None]
  - Muscle spasms [None]
  - Dyskinesia [None]
  - Rash [None]
  - Blister [None]
  - Urticaria [None]
  - Reduced facial expression [None]
  - Dizziness [None]

NARRATIVE: CASE EVENT DATE: 20181105
